FAERS Safety Report 8814860 (Version 1)
Quarter: 2012Q4

REPORT INFORMATION
  Report Type: 
  Country: US (occurrence: US)
  Receive Date: 20120928
  Receipt Date: 20120928
  Transmission Date: 20130627
  Serious: Yes (Death, Congenital Anomaly)
  Sender: FDA-Public Use
  Company Number: US-FRI-1000038907

PATIENT
  Age: 0 Year
  Sex: Male

DRUGS (1)
  1. LEXAPRO [Suspect]
     Route: 064

REACTIONS (2)
  - Ebstein^s anomaly [Fatal]
  - Congenital anomaly [Fatal]
